FAERS Safety Report 8301924-5 (Version None)
Quarter: 2012Q2

REPORT INFORMATION
  Report Type: 
  Country: None (occurrence: None)
  Receive Date: 20120420
  Receipt Date: 20120409
  Transmission Date: 20120825
  Serious: Yes (Hospitalization, Disabling, Other)
  Sender: FDA-Public Use
  Company Number: JP-CTI_01077_2009

PATIENT
  Sex: Male

DRUGS (14)
  1. MEIACT MS - CEFDITOREN PIVOXIL [Suspect]
     Dosage: DAILY DOSE 150 MG
     Route: 048
     Dates: start: 20090406, end: 20090409
  2. KETOTIFEN FUMARATE [Concomitant]
     Indication: RHINITIS
     Route: 048
     Dates: start: 20090327, end: 20090412
  3. ANTIBIOTICS-RESISTANT LACTIC ACID BACTERIAE [Concomitant]
     Indication: ANTIBIOTIC PROPHYLAXIS
     Route: 048
     Dates: start: 20090327, end: 20090411
  4. MEIACT MS - CEFDITOREN PIVOXIL [Suspect]
     Dosage: DAILY DOSE 150 MG
     Route: 048
     Dates: start: 20090105, end: 20090109
  5. TIPEPIDINE HIBENZATE [Concomitant]
     Indication: BRONCHITIS
     Route: 048
     Dates: start: 20090406, end: 20090411
  6. MEIACT MS - CEFDITOREN PIVOXIL [Suspect]
     Dosage: DAILY DOSE 200 MG
     Route: 048
     Dates: start: 20090410, end: 20090411
  7. MEIACT MS - CEFDITOREN PIVOXIL [Suspect]
     Dosage: DAILY DOSE 150 MG
     Route: 048
     Dates: start: 20090209, end: 20090212
  8. MEIACT MS - CEFDITOREN PIVOXIL [Suspect]
     Dosage: DAILY DOSE 150 MG
     Route: 048
     Dates: start: 20090327, end: 20090328
  9. OFLOXACIN [Concomitant]
     Indication: OTITIS MEDIA
     Dosage: DF
     Route: 001
     Dates: start: 20090327, end: 20090411
  10. TULOBUTEROL HYDROCHLORIDE [Concomitant]
     Indication: BRONCHITIS
     Route: 048
     Dates: start: 20090406, end: 20090411
  11. L-CARBOCYSTEINE [Concomitant]
     Indication: OTITIS MEDIA
     Dosage: 1.0 G/DAY
     Route: 048
     Dates: start: 20090327, end: 20090412
  12. MEIACT MS - CEFDITOREN PIVOXIL [Suspect]
     Indication: OTITIS MEDIA
     Dosage: DAILY DOSE 150 MG
     Route: 048
     Dates: start: 20090331, end: 20090403
  13. MEIACT MS - CEFDITOREN PIVOXIL [Suspect]
     Dosage: DAILY DOSE 150 MG
     Route: 048
     Dates: start: 20081212, end: 20081220
  14. AMBROXOL HYDROCHLORIDE [Concomitant]
     Indication: BRONCHITIS
     Route: 048
     Dates: start: 20090406, end: 20090411

REACTIONS (4)
  - EPILEPSY [None]
  - HYPOGLYCAEMIC SEIZURE [None]
  - CARNITINE DECREASED [None]
  - MONOPLEGIA [None]
